FAERS Safety Report 18933280 (Version 1)
Quarter: 2021Q1

REPORT INFORMATION
  Report Type: Report from Study
  Country: IL (occurrence: IL)
  Receive Date: 20210224
  Receipt Date: 20210224
  Transmission Date: 20210420
  Serious: Yes (Other)
  Sender: FDA-Public Use
  Company Number: NVSC2021IL039880

PATIENT
  Age: 80 Year
  Sex: Male

DRUGS (2)
  1. INC280 [Suspect]
     Active Substance: CAPMATINIB
     Indication: PRODUCT USED FOR UNKNOWN INDICATION
     Dosage: UNK
     Route: 065
  2. INC280 [Suspect]
     Active Substance: CAPMATINIB
     Dosage: 1 DF, QD (1 PILL A DAY)
     Route: 065

REACTIONS (1)
  - Generalised oedema [Recovering/Resolving]
